FAERS Safety Report 9255764 (Version 1)
Quarter: 2013Q2

REPORT INFORMATION
  Report Type: Spontaneous
  Country: US (occurrence: US)
  Receive Date: 20130425
  Receipt Date: 20130425
  Transmission Date: 20140414
  Serious: No
  Sender: FDA-Public Use
  Company Number: US-ASTRAZENECA-2013SE25404

PATIENT
  Sex: 0

DRUGS (4)
  1. CRESTOR [Suspect]
     Indication: CORONARY ARTERY DISEASE
     Route: 048
  2. BABY ASPIRIN [Concomitant]
     Indication: CARDIAC DISORDER
  3. OMEGA 3 [Concomitant]
     Indication: CARDIAC DISORDER
  4. VITAMIN D [Concomitant]
     Indication: CARDIAC DISORDER

REACTIONS (2)
  - Leukopenia [Unknown]
  - Off label use [Unknown]
